FAERS Safety Report 11105832 (Version 1)
Quarter: 2015Q2

REPORT INFORMATION
  Report Type: Spontaneous
  Country: ZA (occurrence: ZA)
  Receive Date: 20150512
  Receipt Date: 20150512
  Transmission Date: 20150821
  Serious: Yes (Other)
  Sender: FDA-Public Use
  Company Number: ZA-SUN PHARMACEUTICAL INDUSTRIES LTD-2015R1-96992

PATIENT
  Age: 61 Month
  Sex: Male

DRUGS (1)
  1. PREDNISONE. [Suspect]
     Active Substance: PREDNISONE
     Indication: NEPHROTIC SYNDROME
     Dosage: 2 MG/KG, QOD
     Route: 065

REACTIONS (3)
  - Cushingoid [Unknown]
  - Hypertension [Unknown]
  - Toxicity to various agents [Unknown]
